FAERS Safety Report 23162220 (Version 1)
Quarter: 2023Q4

REPORT INFORMATION
  Report Type: Spontaneous
  Country: PL (occurrence: PL)
  Receive Date: 20231109
  Receipt Date: 20231109
  Transmission Date: 20240109
  Serious: Yes (Hospitalization, Other)
  Sender: FDA-Public Use
  Company Number: PL-POLFAT-144-2023

PATIENT

DRUGS (2)
  1. IBUPROFEN [Suspect]
     Active Substance: IBUPROFEN
     Indication: Spinal pain
     Dosage: UNK (TREATED WITH DRUG AD HOC)
  2. KETOPROFEN [Suspect]
     Active Substance: KETOPROFEN
     Indication: Spinal pain
     Dosage: UNK (TREATED WITH DRUG AD HOC)

REACTIONS (6)
  - Tubulointerstitial nephritis [Recovered/Resolved]
  - Acute kidney injury [Unknown]
  - Urine abnormality [Recovering/Resolving]
  - Proteinuria [Recovering/Resolving]
  - Oliguria [Recovering/Resolving]
  - Pain [Recovering/Resolving]
